FAERS Safety Report 21192115 (Version 1)
Quarter: 2022Q3

REPORT INFORMATION
  Report Type: Spontaneous
  Country: US (occurrence: US)
  Receive Date: 20220809
  Receipt Date: 20220809
  Transmission Date: 20221027
  Serious: Yes (Other)
  Sender: FDA-Public Use
  Company Number: US-DASHPHARMA-2022-US-018928

PATIENT
  Age: 32 Year
  Sex: Male

DRUGS (1)
  1. TESTOSTERONE [Suspect]
     Active Substance: TESTOSTERONE
     Indication: Gender dysphoria

REACTIONS (2)
  - Endometrial hyperplasia [Unknown]
  - Amenorrhoea [Unknown]
